FAERS Safety Report 12968410 (Version 1)
Quarter: 2016Q4

REPORT INFORMATION
  Report Type: Spontaneous
  Country: US (occurrence: US)
  Receive Date: 20161122
  Receipt Date: 20161122
  Transmission Date: 20170207
  Serious: Yes (Disabling)
  Sender: FDA-Public Use
  Company Number: None

PATIENT
  Sex: Female

DRUGS (2)
  1. LEVAQUIN [Suspect]
     Active Substance: LEVOFLOXACIN
     Indication: SINUSITIS
  2. LEVOTHYROXINE. [Concomitant]
     Active Substance: LEVOTHYROXINE

REACTIONS (8)
  - Viral infection [None]
  - Pain in extremity [None]
  - Tendonitis [None]
  - Musculoskeletal pain [None]
  - Tendon pain [None]
  - Disease recurrence [None]
  - Pain in jaw [None]
  - Immune system disorder [None]

NARRATIVE: CASE EVENT DATE: 20140911
